FAERS Safety Report 10073051 (Version 5)
Quarter: 2015Q1

REPORT INFORMATION
  Report Type: Spontaneous
  Country: JP (occurrence: JP)
  Receive Date: 20140411
  Receipt Date: 20150326
  Transmission Date: 20150720
  Serious: Yes (Hospitalization)
  Sender: FDA-Public Use
  Company Number: JP-TEVA-475035USA

PATIENT
  Age: 51 Year
  Sex: Male

DRUGS (10)
  1. METALCAPTASE [Concomitant]
     Active Substance: PENICILLAMINE
     Indication: HEPATO-LENTICULAR DEGENERATION
     Dosage: 600 MILLIGRAM DAILY;
     Route: 048
     Dates: start: 20091005
  2. GALZIN [Suspect]
     Active Substance: ZINC ACETATE
     Indication: HEPATO-LENTICULAR DEGENERATION
     Dosage: 450 MILLIGRAM DAILY;
     Route: 048
     Dates: start: 20091005
  3. PROLMON [Concomitant]
     Active Substance: PROTOPORPHYRIN DISODIUM
     Indication: HEPATO-LENTICULAR DEGENERATION
     Dosage: 60 MILLIGRAM DAILY;
     Route: 048
     Dates: start: 20091005
  4. ADEROXAL [Concomitant]
     Active Substance: PYRIDOXAL PHOSPHATE
     Indication: HEPATO-LENTICULAR DEGENERATION
     Dosage: .4 GRAM DAILY;
     Route: 048
     Dates: start: 20111024
  5. METALCAPTASE [Concomitant]
     Active Substance: PENICILLAMINE
     Indication: HEPATO-LENTICULAR DEGENERATION
     Dosage: 400 MILLIGRAM DAILY;
     Route: 048
     Dates: start: 20111024
  6. GLUFAST [Concomitant]
     Active Substance: MITIGLINIDE
     Indication: DISEASE COMPLICATION
     Dosage: 30 MILLIGRAM DAILY;
     Route: 048
     Dates: start: 20101004
  7. PROHEPARUM [Concomitant]
     Active Substance: CHOLINE BITARTRATE\CYSTEINE\INOSITOL\MAMMAL LIVER
     Indication: HEPATO-LENTICULAR DEGENERATION
     Dosage: 3 TABLET DAILY;
     Route: 048
     Dates: start: 20091005
  8. DIHYDERGOT [Concomitant]
     Indication: DISEASE COMPLICATION
     Dosage: 3 MILLIGRAM DAILY;
     Route: 048
     Dates: start: 20091005
  9. DIOVAN [Concomitant]
     Active Substance: VALSARTAN
     Indication: DISEASE COMPLICATION
     Dosage: 80 MILLIGRAM DAILY;
     Route: 048
     Dates: start: 20111024
  10. SUREPOST [Concomitant]
     Active Substance: REPAGLINIDE
     Indication: DISEASE COMPLICATION
     Dosage: 1.5 MILLIGRAM DAILY;
     Route: 048
     Dates: start: 20111024

REACTIONS (1)
  - Infective spondylitis [Recovering/Resolving]

NARRATIVE: CASE EVENT DATE: 20131230
